FAERS Safety Report 4523717-7 (Version None)
Quarter: 2004Q4

REPORT INFORMATION
  Report Type: 
  Country: None (occurrence: None)
  Receive Date: 20041210
  Receipt Date: 20041207
  Transmission Date: 20050328
  Serious: Yes (Death)
  Sender: FDA-Public Use
  Company Number: DE-GLAXOSMITHKLINE-D0045421A

PATIENT
  Age: 61 Year
  Sex: Female
  Weight: 116 kg

DRUGS (5)
  1. HYCAMTIN [Suspect]
     Indication: OVARIAN EPITHELIAL CANCER
     Dosage: 1.25MGM2 PER DAY
     Route: 042
     Dates: start: 20020729, end: 20020802
  2. TAXOL [Concomitant]
     Indication: OVARIAN EPITHELIAL CANCER
     Dosage: 175MGM2 PER DAY
     Route: 042
  3. TREOSULFAN [Concomitant]
     Indication: OVARIAN EPITHELIAL CANCER
     Dosage: 5GM2 PER DAY
     Route: 042
  4. CARBOPLATIN [Concomitant]
     Indication: OVARIAN EPITHELIAL CANCER
     Route: 042
  5. RED BLOOD CELLS [Concomitant]
     Route: 042

REACTIONS (1)
  - DEATH [None]
